FAERS Safety Report 8966795 (Version 3)
Quarter: 2013Q1

REPORT INFORMATION
  Report Type: Spontaneous
  Country: IT (occurrence: IT)
  Receive Date: 20121217
  Receipt Date: 20130121
  Transmission Date: 20140127
  Serious: Yes (Life-Threatening)
  Sender: FDA-Public Use
  Company Number: PHHY2012IT115390

PATIENT
  Age: 91 Year
  Sex: Male

DRUGS (17)
  1. LEPONEX [Suspect]
     Dosage: 100 MG, UNK
     Route: 048
     Dates: start: 20120913, end: 20120913
  2. AKINETON [Suspect]
     Dosage: 4 MG
     Route: 048
     Dates: start: 20120913, end: 20120913
  3. SERENASE [Suspect]
     Dosage: 15 DRP
     Route: 048
     Dates: start: 20120913, end: 20120913
  4. SEREUPIN [Suspect]
     Dosage: 10 MG
     Route: 048
     Dates: start: 20120913, end: 20120913
  5. CHLORPROMAZINE [Suspect]
     Dosage: 5 DRP
     Route: 048
     Dates: start: 20120913, end: 20120913
  6. EUTIROX [Concomitant]
  7. LANSOX [Concomitant]
  8. CONGESCOR [Concomitant]
  9. TRINIPLAS [Concomitant]
  10. PREVEX//FELODIPINE [Concomitant]
  11. ZOLOFT [Concomitant]
  12. LANOXIN [Concomitant]
  13. TRIATEC [Concomitant]
  14. GLURENOR [Concomitant]
  15. LANTUS [Concomitant]
  16. TIKLID [Concomitant]
  17. LACRIMART [Concomitant]

REACTIONS (4)
  - Bradycardia [Not Recovered/Not Resolved]
  - Cardio-respiratory arrest [Not Recovered/Not Resolved]
  - Sopor [Not Recovered/Not Resolved]
  - Wrong drug administered [Unknown]
